FAERS Safety Report 19441047 (Version 4)
Quarter: 2022Q1

REPORT INFORMATION
  Report Type: Other
  Country: CN (occurrence: None)
  Receive Date: 20210621
  Receipt Date: 20220224
  Transmission Date: 20220423
  Serious: Yes (Other)
  Sender: FDA-Public Use
  Company Number: CN-ROCHE-2691247

PATIENT

DRUGS (2)
  1. CAPECITABINE [Suspect]
     Active Substance: CAPECITABINE
     Indication: Breast cancer metastatic
     Route: 048
  2. PYROTINIB [Suspect]
     Active Substance: PYROTINIB
     Indication: Breast cancer metastatic
     Route: 048

REACTIONS (36)
  - Vision blurred [Unknown]
  - Ventricular fibrillation [Unknown]
  - Acute kidney injury [Unknown]
  - Anaemia [Unknown]
  - Diarrhoea [Unknown]
  - Leukopenia [Unknown]
  - Palmar-plantar erythrodysaesthesia syndrome [Unknown]
  - Neutrophil count decreased [Unknown]
  - White blood cell count decreased [Unknown]
  - Hypertriglyceridaemia [Unknown]
  - Hypokalaemia [Unknown]
  - Palmar-plantar erythrodysaesthesia syndrome [Unknown]
  - Blood bilirubin increased [Unknown]
  - Vomiting [Unknown]
  - Bilirubin conjugated increased [Unknown]
  - Aspartate aminotransferase increased [Unknown]
  - Decreased appetite [Unknown]
  - Alanine aminotransferase increased [Unknown]
  - Urinary tract infection [Unknown]
  - Abdominal distension [Unknown]
  - Stomatitis [Unknown]
  - Platelet count decreased [Unknown]
  - Lymphocyte count decreased [Unknown]
  - Hypophosphataemia [Unknown]
  - Dizziness [Unknown]
  - Electrocardiogram QT prolonged [Unknown]
  - Dyspnoea [Unknown]
  - Hyperuricaemia [Unknown]
  - Urine output decreased [Unknown]
  - Soft tissue infection [Unknown]
  - Syncope [Unknown]
  - Pneumonitis [Unknown]
  - Embolism [Unknown]
  - Cardiac disorder [Unknown]
  - Hypoxia [Unknown]
  - Ankle fracture [Unknown]
